FAERS Safety Report 8152082-1 (Version None)
Quarter: 2012Q1

REPORT INFORMATION
  Report Type: 
  Country: None (occurrence: None)
  Receive Date: 20120221
  Receipt Date: 20120217
  Transmission Date: 20120608
  Serious: Yes (Other)
  Sender: FDA-Public Use
  Company Number: US-PFIZER INC-2012043693

PATIENT
  Sex: Male
  Weight: 63.492 kg

DRUGS (2)
  1. RISPERDAL [Suspect]
     Dosage: UNK
  2. GEODON [Suspect]
     Dosage: UNK, DAILY
     Dates: start: 20111101

REACTIONS (5)
  - FATIGUE [None]
  - CONFUSIONAL STATE [None]
  - MUSCLE CONTRACTIONS INVOLUNTARY [None]
  - CONSTIPATION [None]
  - DYSPEPSIA [None]
